FAERS Safety Report 16817576 (Version 1)
Quarter: 2019Q3

REPORT INFORMATION
  Report Type: Spontaneous
  Country: US (occurrence: US)
  Receive Date: 20190917
  Receipt Date: 20190917
  Transmission Date: 20191005
  Serious: No
  Sender: FDA-Public Use
  Company Number: US-PFIZER INC-2019398934

PATIENT
  Age: 72 Year
  Sex: Female
  Weight: 83.9 kg

DRUGS (1)
  1. PREGABALIN. [Suspect]
     Active Substance: PREGABALIN
     Indication: FIBROMYALGIA
     Dosage: UNK

REACTIONS (3)
  - Stomatitis [Recovering/Resolving]
  - Swelling face [Recovering/Resolving]
  - Drug hypersensitivity [Not Recovered/Not Resolved]
